FAERS Safety Report 5724562-7 (Version None)
Quarter: 2008Q2

REPORT INFORMATION
  Report Type: 
  Country: None (occurrence: None)
  Receive Date: 20080430
  Receipt Date: 20080430
  Transmission Date: 20081010
  Serious: Yes (Other)
  Sender: FDA-Public Use
  Company Number: None

PATIENT
  Sex: Male

DRUGS (1)
  1. METHYLPHENIDATE HCL [Suspect]
     Indication: ATTENTION DEFICIT/HYPERACTIVITY DISORDER
     Dosage: 10MG BID PO
     Route: 048
     Dates: start: 20000701, end: 20000801

REACTIONS (3)
  - AGGRESSION [None]
  - AGITATION [None]
  - ILL-DEFINED DISORDER [None]
